FAERS Safety Report 13767946 (Version 2)
Quarter: 2017Q3

REPORT INFORMATION
  Report Type: Spontaneous
  Country: US (occurrence: US)
  Receive Date: 20170719
  Receipt Date: 20170810
  Transmission Date: 20171127
  Serious: Yes (Other)
  Sender: FDA-Public Use
  Company Number: US-SAOL THERAPEUTICS-2017SAO01044

PATIENT
  Age: 44 Year
  Sex: Female

DRUGS (1)
  1. BACLOFEN. [Suspect]
     Active Substance: BACLOFEN
     Route: 037

REACTIONS (7)
  - Headache [Recovered/Resolved]
  - Medical device site discomfort [Unknown]
  - Nausea [Recovered/Resolved]
  - Cerebrospinal fluid leakage [Unknown]
  - Implant site swelling [Recovered/Resolved]
  - Treatment noncompliance [Unknown]
  - Hallucination [Recovered/Resolved]

NARRATIVE: CASE EVENT DATE: 201702
